FAERS Safety Report 13688694 (Version 2)
Quarter: 2017Q3

REPORT INFORMATION
  Report Type: Spontaneous
  Country: SI (occurrence: SI)
  Receive Date: 20170626
  Receipt Date: 20170814
  Transmission Date: 20171127
  Serious: Yes (Life-Threatening, Hospitalization)
  Sender: FDA-Public Use
  Company Number: SI-ELI_LILLY_AND_COMPANY-SI201706002979

PATIENT
  Age: 62 Year
  Sex: Male

DRUGS (6)
  1. ERBITUX [Suspect]
     Active Substance: CETUXIMAB
     Dosage: 700 MG, UNKNOWN
     Route: 042
     Dates: start: 20170529, end: 20170529
  2. ERBITUX [Suspect]
     Active Substance: CETUXIMAB
     Dosage: 700 MG, UNKNOWN
     Route: 042
     Dates: start: 20170529, end: 20170529
  3. METAMIZOL STADA [Concomitant]
     Active Substance: METAMIZOLE SODIUM
     Indication: PRODUCT USED FOR UNKNOWN INDICATION
     Dosage: 20 DROPS TID AND AS NECESSARY
  4. REGLAN [Concomitant]
     Active Substance: METOCLOPRAMIDE HYDROCHLORIDE
     Indication: PRODUCT USED FOR UNKNOWN INDICATION
     Dosage: 1 DF, 3X2 AS NECESSARY
  5. FOLACIN                            /00024201/ [Concomitant]
     Active Substance: FOLIC ACID
     Indication: PRODUCT USED FOR UNKNOWN INDICATION
     Dosage: 1DF, DAILY
     Route: 065
  6. ERBITUX [Suspect]
     Active Substance: CETUXIMAB
     Indication: OROPHARYNGEAL CANCER
     Dosage: 700 MG, UNKNOWN
     Route: 042
     Dates: start: 20170529, end: 20170529

REACTIONS (5)
  - Pyrexia [Recovering/Resolving]
  - Bundle branch block left [Recovering/Resolving]
  - Chills [Recovering/Resolving]
  - Sinus tachycardia [Recovered/Resolved]
  - Ischaemia [Recovering/Resolving]

NARRATIVE: CASE EVENT DATE: 20170529
